FAERS Safety Report 15250582 (Version 9)
Quarter: 2019Q4

REPORT INFORMATION
  Report Type: Spontaneous
  Country: US (occurrence: US)
  Receive Date: 20180807
  Receipt Date: 20191030
  Transmission Date: 20200122
  Serious: No
  Sender: FDA-Public Use
  Company Number: US-PFIZER INC-2017469477

PATIENT
  Age: 59 Year
  Sex: Male
  Weight: 118 kg

DRUGS (44)
  1. LYRICA [Suspect]
     Active Substance: PREGABALIN
     Dosage: 150 MG, 4X/DAY
     Route: 048
  2. LISINOPRIL. [Concomitant]
     Active Substance: LISINOPRIL
     Dosage: 10 MG, DAILY
     Route: 048
  3. PANTOPRAZOLE [Concomitant]
     Active Substance: PANTOPRAZOLE
     Dosage: 40 MG, DAILY
     Route: 048
  4. ANORO ELLIPTA [Concomitant]
     Active Substance: UMECLIDINIUM BROMIDE\VILANTEROL TRIFENATATE
     Dosage: UNK, DAILY (1 PUFF (S), POWDER/ (UMECLIDINIUM BROMIDE: 62.5 MCG, VILANTEROL TRIFENATATE: 25 MCG))
     Route: 055
  5. ALBUTEROL. [Concomitant]
     Active Substance: ALBUTEROL
     Indication: HYPERSENSITIVITY
     Dosage: UNK, AS NEEDED (2 PUFF(S)/ONCE DAY OF TX PRN/90 MCG/INH)
     Dates: start: 20170428, end: 20170513
  6. SODIUM CHLORIDE. [Concomitant]
     Active Substance: SODIUM CHLORIDE
     Dosage: 250 ML, 1X/DAY (ONCE DAY OF TX, ROUTINE)
     Route: 042
     Dates: start: 20171025, end: 20171108
  7. MUCINEX [Concomitant]
     Active Substance: GUAIFENESIN
     Dosage: 600 MG, DAILY
     Route: 048
  8. ONE A DAY MEN^S [Concomitant]
     Active Substance: VITAMINS
     Dosage: 1 DF, UNK
     Route: 048
  9. GOLYTELY [Concomitant]
     Active Substance: POLYETHYLENE GLYCOL 3350\POTASSIUM CHLORIDE\SODIUM BICARBONATE\SODIUM CHLORIDE\SODIUM SULFATE ANHYDROUS
     Dosage: UNK (6PM THE NIGHT BEFORE TEST, DRINK 8OZ EVERY 1.5 MIN X 8. 6 HOURS BEFORE TEST, DRINK 8OZ EVERY 1)
     Route: 048
  10. MEPERIDINE [Concomitant]
     Active Substance: MEPERIDINE
     Dosage: 25 MG, AS NEEDED (DAY OF TX PRN)
     Route: 042
     Dates: start: 20171025, end: 20171109
  11. TAMSULOSIN [Concomitant]
     Active Substance: TAMSULOSIN
     Dosage: 0.8 MG, DAILY
     Route: 048
  12. INSULIN [Concomitant]
     Active Substance: INSULIN NOS
     Indication: DIABETES MELLITUS
     Dosage: UNK
  13. LYRICA [Suspect]
     Active Substance: PREGABALIN
     Indication: DIABETIC NEUROPATHY
     Dosage: 100 MG, 3X/DAY
     Route: 048
     Dates: start: 20171026
  14. CELEXA [Concomitant]
     Active Substance: CITALOPRAM HYDROBROMIDE
     Dosage: 20 MG, DAILY
     Route: 048
  15. RANITIDINE. [Concomitant]
     Active Substance: RANITIDINE
     Dosage: 50 MG, AS NEEDED (ONCE DAY OF TX PRN)
     Route: 042
     Dates: start: 20171025, end: 20171109
  16. ALBUTEROL. [Concomitant]
     Active Substance: ALBUTEROL
     Indication: HYPERSENSITIVITY
     Dosage: 2.5 MG, AS NEEDED (ONCE DAY OF TX PRN)
     Dates: start: 20170428, end: 20170513
  17. ALBUTEROL. [Concomitant]
     Active Substance: ALBUTEROL
     Dosage: 2.5 MG, AS NEEDED (ONCE DAY OF TX PRN)
     Dates: start: 20171025, end: 20171109
  18. ALBUTEROL. [Concomitant]
     Active Substance: ALBUTEROL
     Dosage: 0.63 MG, 4X/DAY
  19. HYDROCORTISONE. [Concomitant]
     Active Substance: HYDROCORTISONE
     Indication: HYPERSENSITIVITY
     Dosage: 100 MG, AS NEEDED (ONCE DAY OF TX PRN)
     Route: 042
     Dates: start: 20170428, end: 20170513
  20. DIPHENHYDRAMINE. [Concomitant]
     Active Substance: DIPHENHYDRAMINE
     Dosage: 25 MG, 1X/DAY
     Route: 048
     Dates: start: 20170428, end: 20170512
  21. MEPERIDINE [Concomitant]
     Active Substance: MEPERIDINE
     Dosage: 25 MG, AS NEEDED (ONCE DAY OF TX PRN)
     Route: 042
     Dates: start: 20170428, end: 20170513
  22. HEPARIN FLUSH [Concomitant]
     Active Substance: HEPARIN SODIUM
     Dosage: 50 IU, AS NEEDED (ONCE DAY OF TX PRN)
     Dates: start: 20170428, end: 20170513
  23. LANTUS [Concomitant]
     Active Substance: INSULIN GLARGINE
     Dosage: 80 IU, DAILY (NIGHTLY (BEDTIME)
     Route: 058
  24. DIPHENHYDRAMINE. [Concomitant]
     Active Substance: DIPHENHYDRAMINE
     Dosage: 50 MG, AS NEEDED (ONCE DAY OF TX PRN)
     Route: 042
     Dates: start: 20171025, end: 20171109
  25. RITUXIMAB. [Concomitant]
     Active Substance: RITUXIMAB
     Dosage: 1000 MG, 1X/DAY
     Route: 042
     Dates: start: 20171025, end: 20171108
  26. EPINEPHRINE. [Concomitant]
     Active Substance: EPINEPHRINE
     Indication: HYPERSENSITIVITY
     Dosage: 0.3 MG, AS NEEDED (ONCE DAY OF TX PRN)
     Route: 030
     Dates: start: 20170428, end: 20170513
  27. DIPHENHYDRAMINE. [Concomitant]
     Active Substance: DIPHENHYDRAMINE
     Dosage: 25 MG, 1X/DAY
     Route: 048
     Dates: start: 20171025, end: 20171108
  28. SODIUM CHLORIDE. [Concomitant]
     Active Substance: SODIUM CHLORIDE
     Indication: HYDROTHERAPY
     Dosage: 250 ML, 1X/DAY(ONCE DAY OF TX, ROUTINE)
     Route: 042
     Dates: start: 20170428, end: 20170512
  29. LYRICA [Suspect]
     Active Substance: PREGABALIN
     Dosage: 100 MG, 2X/DAY (ONE IN MORNING ONCE AT NIGHT)
     Route: 048
  30. LYRICA [Suspect]
     Active Substance: PREGABALIN
     Dosage: 300 MG, 1X/DAY
     Route: 048
  31. VENTOLIN HFA [Concomitant]
     Active Substance: ALBUTEROL SULFATE
     Indication: WHEEZING
     Dosage: UNK, AS NEEDED (2 PUFF^S/ INHALE EVERY 6 HR)
     Route: 055
  32. HYDROCORTISONE. [Concomitant]
     Active Substance: HYDROCORTISONE
     Dosage: 100 MG, AS NEEDED (ONCE DAY OF TX PRN)
     Route: 042
     Dates: start: 20171025, end: 20171109
  33. RITUXIMAB. [Concomitant]
     Active Substance: RITUXIMAB
     Dosage: 1000 MG, 1X/DAY
     Route: 042
     Dates: start: 20170428, end: 20170512
  34. ATORVASTATIN [Concomitant]
     Active Substance: ATORVASTATIN
     Dosage: 80 MG, DAILY
     Route: 048
  35. EPIPEN [Concomitant]
     Active Substance: EPINEPHRINE
     Indication: ANAPHYLACTIC REACTION
     Dosage: 0.3 MG, UNK (ONCE, USE AS DIRECTED)
     Route: 030
  36. RANITIDINE. [Concomitant]
     Active Substance: RANITIDINE
     Indication: HYPERSENSITIVITY
     Dosage: 50 MG, AS NEEDED (ONCE DAY OF TX PRN)
     Route: 042
     Dates: start: 20170428, end: 20170513
  37. DIPHENHYDRAMINE. [Concomitant]
     Active Substance: DIPHENHYDRAMINE
     Indication: HYPERSENSITIVITY
     Dosage: 50 MG, AS NEEDED (ONCE DAY OF TX PRN)
     Route: 042
     Dates: start: 20170428, end: 20170513
  38. HEPARIN FLUSH [Concomitant]
     Active Substance: HEPARIN SODIUM
     Dosage: 50 IU, AS NEEDED (ONCE DAY OF TX PRN)
     Dates: start: 20171025, end: 20171109
  39. ZYRTEC [Concomitant]
     Active Substance: CETIRIZINE HYDROCHLORIDE
     Dosage: 10 MG, DAILY
     Route: 048
  40. ALBUTEROL. [Concomitant]
     Active Substance: ALBUTEROL
     Dosage: UNK, AS NEEDED (2 PUFF(S)90 MCG/INH )
     Route: 055
     Dates: start: 20171025, end: 20171109
  41. EPINEPHRINE. [Concomitant]
     Active Substance: EPINEPHRINE
     Dosage: 0.3 MG, AS NEEDED (ONCE DAY OF TX PRN)
     Route: 030
     Dates: start: 20171025, end: 20171109
  42. ACETAMINOPHEN. [Concomitant]
     Active Substance: ACETAMINOPHEN
     Dosage: 650 MG, 1X/DAY
     Route: 048
     Dates: start: 20170428, end: 20170512
  43. ACETAMINOPHEN. [Concomitant]
     Active Substance: ACETAMINOPHEN
     Dosage: 650 MG, 1X/DAY
     Route: 048
     Dates: start: 20171025, end: 20171108
  44. COREG [Concomitant]
     Active Substance: CARVEDILOL
     Dosage: 6.25 MG, 2X/DAY (W MEALS)
     Route: 048

REACTIONS (3)
  - Weight decreased [Unknown]
  - Headache [Unknown]
  - Off label use [Unknown]
